FAERS Safety Report 5873825-3 (Version None)
Quarter: 2008Q3

REPORT INFORMATION
  Report Type: 
  Country: None (occurrence: None)
  Receive Date: 20080903
  Receipt Date: 20080903
  Transmission Date: 20090109
  Serious: Yes (Other)
  Sender: FDA-Public Use
  Company Number: None

PATIENT
  Age: 47 Year
  Sex: Female
  Weight: 64.4108 kg

DRUGS (2)
  1. ASACOL [Suspect]
     Indication: COLITIS ULCERATIVE
     Dosage: 400 MIL 3 X DAILY PO
     Route: 048
     Dates: start: 20080304, end: 20080710
  2. ASACOL [Suspect]
     Indication: CROHN'S DISEASE
     Dosage: 400 MIL 3 X DAILY PO
     Route: 048
     Dates: start: 20080304, end: 20080710

REACTIONS (3)
  - ALOPECIA [None]
  - ARTHRALGIA [None]
  - VISUAL IMPAIRMENT [None]
